FAERS Safety Report 23950385 (Version 1)
Quarter: 2024Q2

REPORT INFORMATION
  Report Type: Spontaneous
  Country: US (occurrence: US)
  Receive Date: 20240607
  Receipt Date: 20240607
  Transmission Date: 20240716
  Serious: Yes (Other)
  Sender: FDA-Public Use
  Company Number: US-MYLANLABS-2024M1051827

PATIENT
  Age: 48 Year
  Sex: Female

DRUGS (2)
  1. GLIMEPIRIDE [Suspect]
     Active Substance: GLIMEPIRIDE
     Indication: Monogenic diabetes
     Dosage: 4 MILLIGRAM, BID, FOR 3 YEARS
     Route: 065
  2. GLIMEPIRIDE [Suspect]
     Active Substance: GLIMEPIRIDE
     Dosage: 2 MILLIGRAM, QD,DOSE OF GLIMEPIRIDE?WAS REDUCED TO 2MG ONCE DAILY
     Route: 065

REACTIONS (1)
  - Drug ineffective [Unknown]
